FAERS Safety Report 8403784-0 (Version None)
Quarter: 2012Q2

REPORT INFORMATION
  Report Type: 
  Country: None (occurrence: None)
  Receive Date: 20120601
  Receipt Date: 20110831
  Transmission Date: 20120825
  Serious: Yes (Hospitalization)
  Sender: FDA-Public Use
  Company Number: US-NOVEN-11US003090

PATIENT
  Sex: Male
  Weight: 31.746 kg

DRUGS (8)
  1. DAYTRANA [Suspect]
     Indication: IRRITABILITY
     Dosage: 15 MG, QD
  2. TRILEPTAL [Concomitant]
     Indication: CONVULSION
     Dosage: UNK
     Route: 048
  3. VITAMIN B COMPLEX CAP [Concomitant]
     Dosage: UNK
     Route: 048
  4. DAYTRANA [Suspect]
     Indication: IMPULSIVE BEHAVIOUR
  5. ERYPED [Concomitant]
     Dosage: UNK
     Route: 048
  6. VALIUM [Concomitant]
     Dosage: UNK
     Route: 048
  7. DAYTRANA [Suspect]
     Indication: PSYCHOMOTOR HYPERACTIVITY
     Dosage: 10 MG, QD
     Route: 062
  8. VIMPAT [Concomitant]
     Indication: CONVULSION
     Dosage: UNK
     Route: 048

REACTIONS (3)
  - PRODUCT QUALITY ISSUE [None]
  - CONVULSION [None]
  - TIC [None]
